FAERS Safety Report 9943254 (Version 2)
Quarter: 2014Q1

REPORT INFORMATION
  Report Type: Spontaneous
  Country: GB (occurrence: GB)
  Receive Date: 20140303
  Receipt Date: 20140306
  Transmission Date: 20141002
  Serious: Yes (Hospitalization, Other)
  Sender: FDA-Public Use
  Company Number: PHHY2014GB021714

PATIENT
  Age: 28 Year
  Sex: Male

DRUGS (3)
  1. OLANZAPINE [Suspect]
     Indication: SCHIZOPHRENIA
     Dosage: 5 MG, QD
     Route: 048
  2. ZYPADHERA [Suspect]
     Indication: SCHIZOPHRENIA
     Dosage: 300 MG, UNKNOWN
     Route: 030
     Dates: start: 20140203
  3. HALOPERIDOL [Concomitant]

REACTIONS (8)
  - Agitation [Unknown]
  - Anxiety [Unknown]
  - Chest pain [Unknown]
  - Sedation [Unknown]
  - Tachycardia [Unknown]
  - Somnolence [Unknown]
  - Injection site haemorrhage [Unknown]
  - Incorrect route of drug administration [Unknown]
